FAERS Safety Report 9160963 (Version 2)
Quarter: 2013Q1

REPORT INFORMATION
  Report Type: Report from Study
  Country: DE (occurrence: DE)
  Receive Date: 20130313
  Receipt Date: 20130318
  Transmission Date: 20140127
  Serious: Yes (Other)
  Sender: FDA-Public Use
  Company Number: DE-FRI-1000043258

PATIENT
  Age: 86 Year
  Sex: Male
  Weight: 78 kg

DRUGS (4)
  1. MEMANTINE (OPEN-LABEL) [Suspect]
     Indication: DEMENTIA ALZHEIMER^S TYPE
     Dosage: 5-20 MG
     Route: 048
     Dates: start: 20120615, end: 20120720
  2. DONEPEZIL [Concomitant]
     Dosage: 10 MG
     Dates: start: 201204
  3. CEFUROXIME SODIUM [Concomitant]
     Indication: INFECTION
     Dosage: 1000 MG
     Dates: start: 20120612
  4. BELOC-ZOK [Concomitant]
     Indication: HYPERTENSION
     Dosage: 47.5 MG

REACTIONS (3)
  - Restlessness [Unknown]
  - Muscle twitching [Unknown]
  - Dyskinesia [Unknown]
